FAERS Safety Report 6021947-9 (Version None)
Quarter: 2008Q4

REPORT INFORMATION
  Report Type: 
  Country: None (occurrence: None)
  Receive Date: 20081229
  Receipt Date: 20081215
  Transmission Date: 20090506
  Serious: Yes (Other)
  Sender: FDA-Public Use
  Company Number: DE-ROCHE-603382

PATIENT

DRUGS (3)
  1. CAPECITABINE [Suspect]
     Indication: RECTAL CANCER
     Route: 048
  2. IRINOTECAN HCL [Suspect]
     Indication: RECTAL CANCER
     Route: 042
  3. CETUXIMAB [Suspect]
     Indication: RECTAL CANCER
     Route: 042

REACTIONS (1)
  - DRUG TOXICITY [None]
